FAERS Safety Report 8127862-9 (Version None)
Quarter: 2012Q1

REPORT INFORMATION
  Report Type: 
  Country: None (occurrence: None)
  Receive Date: 20120210
  Receipt Date: 20110916
  Transmission Date: 20120608
  Serious: No
  Sender: FDA-Public Use
  Company Number: US-GLAXOSMITHKLINE-A0944980A

PATIENT
  Sex: Female

DRUGS (3)
  1. PAROXETINE [Suspect]
     Dosage: 30MG PER DAY
     Route: 048
     Dates: start: 20090101
  2. LIPITOR [Concomitant]
  3. PAXIL CR [Suspect]
     Dosage: 37.5MG PER DAY
     Dates: start: 20110801, end: 20110804

REACTIONS (3)
  - DIARRHOEA [None]
  - ABDOMINAL DISCOMFORT [None]
  - MALAISE [None]
